FAERS Safety Report 4812020-3 (Version None)
Quarter: 2005Q4

REPORT INFORMATION
  Report Type: 
  Country: None (occurrence: None)
  Receive Date: 20051028
  Receipt Date: 20041025
  Transmission Date: 20060501
  Serious: No
  Sender: FDA-Public Use
  Company Number: US-GLAXOSMITHKLINE-A0531202A

PATIENT
  Age: 9 Year
  Sex: Male

DRUGS (4)
  1. ADVAIR DISKUS 100/50 [Suspect]
     Indication: ASTHMA
     Dosage: 100MCG TWICE PER DAY
     Dates: start: 20030401
  2. VENTOLIN [Concomitant]
  3. CONCERTA [Concomitant]
  4. ALLEGRA [Concomitant]

REACTIONS (1)
  - ILL-DEFINED DISORDER [None]
